FAERS Safety Report 7627953 (Version 4)
Quarter: 2016Q3

REPORT INFORMATION
  Report Type: Spontaneous
  Country: US (occurrence: US)
  Receive Date: 20101013
  Receipt Date: 20160823
  Transmission Date: 20161109
  Serious: Yes (Other)
  Sender: FDA-Public Use
  Company Number: US-ASTRAZENECA-2009SE24181

PATIENT
  Age: 69 Year
  Sex: Male

DRUGS (10)
  1. SYMBICORT [Suspect]
     Active Substance: BUDESONIDE\FORMOTEROL FUMARATE DIHYDRATE
     Dosage: DOSE UNKNOWN, EVERY MORNING
     Route: 055
  2. SYMBICORT [Suspect]
     Active Substance: BUDESONIDE\FORMOTEROL FUMARATE DIHYDRATE
     Dosage: 160 / 4.5 MCG, UNKNOWN UNKNOWN
     Route: 055
  3. RESCUE INHALER [Concomitant]
  4. PREDNISONE. [Concomitant]
     Active Substance: PREDNISONE
  5. SPIRIVA [Concomitant]
     Active Substance: TIOTROPIUM BROMIDE MONOHYDRATE
  6. THEOPHYLLINE [Concomitant]
     Active Substance: THEOPHYLLINE ANHYDROUS
  7. SYMBICORT [Suspect]
     Active Substance: BUDESONIDE\FORMOTEROL FUMARATE DIHYDRATE
     Dosage: TWO PUFFS, TWO TIMES A DAY
     Route: 055
     Dates: start: 200903
  8. OXYGEN. [Concomitant]
     Active Substance: OXYGEN
  9. MORE THAN 12 OTHER MEDICATIONS [Concomitant]
  10. FOLIC ACID. [Concomitant]
     Active Substance: FOLIC ACID

REACTIONS (10)
  - Arthritis [Unknown]
  - Weight decreased [Unknown]
  - Pulmonary function test decreased [Not Recovered/Not Resolved]
  - Product quality issue [Unknown]
  - Fibroma [Unknown]
  - Decreased activity [Unknown]
  - Drug dose omission [Unknown]
  - Dyspnoea [Unknown]
  - Emphysema [Unknown]
  - Decreased appetite [Unknown]
